FAERS Safety Report 5377435-6 (Version None)
Quarter: 2007Q3

REPORT INFORMATION
  Report Type: 
  Country: None (occurrence: None)
  Receive Date: 20070703
  Receipt Date: 20070626
  Transmission Date: 20080115
  Serious: Yes (Hospitalization)
  Sender: FDA-Public Use
  Company Number: B0477502A

PATIENT
  Age: 9 Year
  Sex: Male

DRUGS (6)
  1. COMBIVIR [Suspect]
     Indication: HIV INFECTION
  2. ABACAVIR [Suspect]
     Indication: HIV INFECTION
  3. NEVIRAPINE [Suspect]
     Indication: HIV INFECTION
  4. COTRIM [Suspect]
  5. VITAMIN CAP [Concomitant]
  6. AMOXICILLIN [Concomitant]

REACTIONS (12)
  - COUGH [None]
  - DRUG HYPERSENSITIVITY [None]
  - FATIGUE [None]
  - MALAISE [None]
  - MALARIA [None]
  - MUCOUS MEMBRANE DISORDER [None]
  - OCULAR HYPERAEMIA [None]
  - PRURITUS [None]
  - PYREXIA [None]
  - SEPSIS [None]
  - URINARY TRACT INFECTION [None]
  - VOMITING [None]
